FAERS Safety Report 22037998 (Version 1)
Quarter: 2023Q1

REPORT INFORMATION
  Report Type: Spontaneous
  Country: FR (occurrence: FR)
  Receive Date: 20230227
  Receipt Date: 20230227
  Transmission Date: 20230418
  Serious: Yes (Other)
  Sender: FDA-Public Use
  Company Number: FR-AFSSAPS-GR2023000108

PATIENT
  Age: 69 Year
  Sex: Female

DRUGS (1)
  1. GEMCITABINE [Suspect]
     Active Substance: GEMCITABINE
     Indication: Ovarian cancer metastatic
     Dosage: 1500 MILLIGRAM, DAILY
     Route: 040
     Dates: start: 20221202, end: 20221202

REACTIONS (1)
  - Pseudocellulitis [Recovered/Resolved]

NARRATIVE: CASE EVENT DATE: 20221206
